FAERS Safety Report 25433876 (Version 1)
Quarter: 2025Q2

REPORT INFORMATION
  Report Type: Spontaneous
  Country: CN (occurrence: CN)
  Receive Date: 20250613
  Receipt Date: 20250613
  Transmission Date: 20250716
  Serious: Yes (Other)
  Sender: ROCHE
  Company Number: CN-ROCHE-10000307755

PATIENT
  Age: 60 Year
  Sex: Male

DRUGS (8)
  1. RITUXIMAB [Suspect]
     Active Substance: RITUXIMAB
     Indication: High-grade B-cell lymphoma
     Route: 065
     Dates: start: 20180207
  2. RITUXIMAB [Suspect]
     Active Substance: RITUXIMAB
     Indication: Central nervous system lymphoma
  3. OBINUTUZUMAB [Suspect]
     Active Substance: OBINUTUZUMAB
     Indication: High-grade B-cell lymphoma
     Route: 065
     Dates: start: 20220523
  4. OBINUTUZUMAB [Suspect]
     Active Substance: OBINUTUZUMAB
     Indication: Central nervous system lymphoma
  5. GLOFITAMAB [Suspect]
     Active Substance: GLOFITAMAB
     Indication: High-grade B-cell lymphoma
     Route: 065
     Dates: start: 20240828
  6. GLOFITAMAB [Suspect]
     Active Substance: GLOFITAMAB
     Indication: Central nervous system lymphoma
  7. POLATUZUMAB VEDOTIN [Suspect]
     Active Substance: POLATUZUMAB VEDOTIN
     Indication: High-grade B-cell lymphoma
     Route: 065
     Dates: start: 20240828
  8. POLATUZUMAB VEDOTIN [Suspect]
     Active Substance: POLATUZUMAB VEDOTIN
     Indication: Central nervous system lymphoma

REACTIONS (5)
  - Platelet count decreased [Unknown]
  - Infusion related reaction [Unknown]
  - Rash [Unknown]
  - Pyrexia [Unknown]
  - Off label use [Unknown]
